FAERS Safety Report 10274924 (Version 9)
Quarter: 2018Q4

REPORT INFORMATION
  Report Type: Report from Study
  Country: MX (occurrence: MX)
  Receive Date: 20140702
  Receipt Date: 20181211
  Transmission Date: 20190204
  Serious: Yes (Hospitalization, Other)
  Sender: FDA-Public Use
  Company Number: MX-ROCHE-1426208

PATIENT
  Age: 31 Year
  Sex: Female
  Weight: 54 kg

DRUGS (2)
  1. ROACTEMRA [Suspect]
     Active Substance: TOCILIZUMAB
     Indication: RHEUMATOID ARTHRITIS
     Dosage: MOST RECENT DOSE ON MAR/2015?EVERY 4 WEEKS
     Route: 042
     Dates: start: 20120101, end: 201607
  2. ROACTEMRA [Suspect]
     Active Substance: TOCILIZUMAB
     Dosage: CURRENTLY ONGOING
     Route: 042

REACTIONS (16)
  - Papillary thyroid cancer [Recovered/Resolved]
  - Fatigue [Recovered/Resolved]
  - Somnolence [Unknown]
  - Blood triglycerides increased [Unknown]
  - Rash [Unknown]
  - Chondropathy [Not Recovered/Not Resolved]
  - Fall [Unknown]
  - Weight increased [Unknown]
  - Thyroid cancer [Unknown]
  - Gastritis [Recovered/Resolved]
  - Blood cholesterol increased [Unknown]
  - Irritable bowel syndrome [Unknown]
  - Myocardial ischaemia [Unknown]
  - Meniscus injury [Recovering/Resolving]
  - Headache [Unknown]
  - Inflammation [Recovered/Resolved]

NARRATIVE: CASE EVENT DATE: 20120101
